FAERS Safety Report 5854517-3 (Version None)
Quarter: 2008Q3

REPORT INFORMATION
  Report Type: 
  Country: None (occurrence: None)
  Receive Date: 20080822
  Receipt Date: 20070806
  Transmission Date: 20090109
  Serious: No
  Sender: FDA-Public Use
  Company Number: US-ABBOTT-07P-163-0377138-00

PATIENT
  Sex: Female
  Weight: 58.566 kg

DRUGS (3)
  1. SYNTHROID [Suspect]
     Indication: THYROIDECTOMY
     Route: 048
     Dates: start: 20040101
  2. SYNTHROID [Suspect]
     Indication: GOITRE
  3. ROSUVASTATIN [Concomitant]
     Indication: BLOOD CHOLESTEROL
     Route: 048

REACTIONS (1)
  - ALOPECIA [None]
